FAERS Safety Report 7769095 (Version 2)
Quarter: 2013Q1

REPORT INFORMATION
  Report Type: Spontaneous
  Country: AU (occurrence: None)
  Receive Date: 20091113
  Receipt Date: 20121218
  Transmission Date: 20140127
  Serious: Yes (Hospitalization, Other)
  Sender: FDA-Public Use
  Company Number: FABR-1000083

PATIENT
  Age: 41 Year
  Sex: Male
  Weight: 74 kg

DRUGS (15)
  1. FABRAZYME [Suspect]
     Indication: FABRY^S DISEASE
     Dosage: 20 MG, INTRAVENOUS
     Route: 042
     Dates: start: 200809
  2. HYDROCORTONE [Concomitant]
  3. ZYRTEC (CETIRISONE HYDROCHLORIDE) [Concomitant]
  4. ALPRAZOLAM [Concomitant]
  5. PHENYTOIN [Concomitant]
  6. OMEPRAZOLE [Concomitant]
  7. VERAPAMIL HYDROCHLORIDE [Concomitant]
  8. AMITRIPTYLINE HYDROCHLORIDE [Concomitant]
  9. IRBESARTAN [Concomitant]
  10. FOSAMAX [Concomitant]
  11. PARACETAMIL (PARACETAMOL) [Concomitant]
  12. SYMBICORT [Concomitant]
  13. MONTELUKAST [Concomitant]
  14. INTAL FORTE [Concomitant]
  15. DEXAMETHASONE (DEXAMETHASONE) [Concomitant]

REACTIONS (13)
  - Infusion related reaction [None]
  - Periorbital oedema [None]
  - Throat tightness [None]
  - Face oedema [None]
  - Dyspnoea [None]
  - Swollen tongue [None]
  - Oedema [None]
  - General physical health deterioration [None]
  - Osteomyelitis [None]
  - Leg amputation [None]
  - Leg amputation [None]
  - Cholecystectomy [None]
  - Anaphylactic reaction [None]
